FAERS Safety Report 8384773-1 (Version None)
Quarter: 2012Q2

REPORT INFORMATION
  Report Type: 
  Country: None (occurrence: None)
  Receive Date: 20120524
  Receipt Date: 20120516
  Transmission Date: 20120825
  Serious: Yes (Hospitalization, Disabling, Other)
  Sender: FDA-Public Use
  Company Number: FR-ABBOTT-12P-056-0925818-00

PATIENT
  Sex: Female
  Weight: 129 kg

DRUGS (1)
  1. HUMIRA [Suspect]
     Indication: PSORIASIS
     Dates: start: 20110601, end: 20120101

REACTIONS (2)
  - CEREBRAL ISCHAEMIA [None]
  - DEMYELINATION [None]
